FAERS Safety Report 15951877 (Version 2)
Quarter: 2019Q3

REPORT INFORMATION
  Report Type: Spontaneous
  Country: CA (occurrence: CA)
  Receive Date: 20190212
  Receipt Date: 20190801
  Transmission Date: 20191004
  Serious: Yes (Other)
  Sender: FDA-Public Use
  Company Number: CA-PFIZER INC-2019058744

PATIENT
  Age: 55 Year
  Sex: Female

DRUGS (5)
  1. TAMOXIFEN CITRATE. [Suspect]
     Active Substance: TAMOXIFEN CITRATE
     Dosage: UNK (THERAPY DURATION: 699.0)
     Route: 048
  2. IBRANCE [Suspect]
     Active Substance: PALBOCICLIB
     Dosage: UNK
     Route: 048
  3. CAPECITABINE. [Concomitant]
     Active Substance: CAPECITABINE
     Dosage: UNK (THERAPY DURATION: 4.0 YEARS)
  4. LETROZOLE. [Concomitant]
     Active Substance: LETROZOLE
     Dosage: UNK (THERAPY DURATION: 546.0)
  5. FULVESTRANT. [Suspect]
     Active Substance: FULVESTRANT
     Dosage: UNK
     Route: 030

REACTIONS (3)
  - Off label use [Unknown]
  - Neoplasm progression [Unknown]
  - Bone pain [Unknown]
